FAERS Safety Report 14558116 (Version 2)
Quarter: 2018Q2

REPORT INFORMATION
  Report Type: Report from Study
  Country: IN (occurrence: IN)
  Receive Date: 20180221
  Receipt Date: 20180409
  Transmission Date: 20180711
  Serious: Yes (Other)
  Sender: FDA-Public Use
  Company Number: PHHY2018IN027523

PATIENT
  Age: 48 Year
  Sex: Female
  Weight: 70 kg

DRUGS (5)
  1. AFINITOR [Suspect]
     Active Substance: EVEROLIMUS
     Indication: BREAST CANCER
     Dosage: 5 MG, QD
     Route: 048
     Dates: start: 20171120
  2. POLYBION CZS [Concomitant]
     Indication: PRODUCT USED FOR UNKNOWN INDICATION
     Dosage: UNK UNK, QD
     Route: 048
     Dates: start: 20180124
  3. AFINITOR [Suspect]
     Active Substance: EVEROLIMUS
     Dosage: 10MG OD/5MG OD ALTERNATE DAYS
     Route: 048
     Dates: start: 20180328
  4. TAMOXIFEN [Concomitant]
     Active Substance: TAMOXIFEN
     Indication: BREAST CANCER
     Dosage: 20 MG, QD
     Route: 048
  5. ZOLEDRONIC ACID [Concomitant]
     Active Substance: ZOLEDRONIC ACID
     Indication: BREAST CANCER
     Dosage: 4 MG, QMO
     Route: 042

REACTIONS (7)
  - Cough [Not Recovered/Not Resolved]
  - Hyperthermia [Recovered/Resolved]
  - Flatulence [Not Recovered/Not Resolved]
  - Somnolence [Not Recovered/Not Resolved]
  - Faeces discoloured [Not Recovered/Not Resolved]
  - Hypoaesthesia [Unknown]
  - Dyspnoea [Not Recovered/Not Resolved]

NARRATIVE: CASE EVENT DATE: 201711
